FAERS Safety Report 18595939 (Version 1)
Quarter: 2020Q4

REPORT INFORMATION
  Report Type: Spontaneous
  Country: US (occurrence: US)
  Receive Date: 20201209
  Receipt Date: 20201209
  Transmission Date: 20210114
  Serious: No
  Sender: FDA-Public Use
  Company Number: US-SUPERNUS PHARMACEUTICALS, INC.-2020SUP00194

PATIENT
  Sex: Female
  Weight: 56.24 kg

DRUGS (3)
  1. TROKENDI XR [Suspect]
     Active Substance: TOPIRAMATE
     Indication: MIGRAINE WITHOUT AURA
     Dosage: 1 CAPSULE, 1X/DAY ^FOR 2 WEEKS^ (THEN INCREASE TO 2 CAPS.)
     Dates: start: 20200707, end: 20200714
  2. PREDNISONE. [Concomitant]
     Active Substance: PREDNISONE
  3. TROKENDI XR [Suspect]
     Active Substance: TOPIRAMATE
     Indication: STATUS MIGRAINOSUS
     Dosage: 2 CAPSULES, 1X/DAY
     Dates: start: 20200715, end: 20200807

REACTIONS (1)
  - Hypoaesthesia [Recovered/Resolved]

NARRATIVE: CASE EVENT DATE: 2020
